FAERS Safety Report 7588194-0 (Version None)
Quarter: 2011Q3

REPORT INFORMATION
  Report Type: 
  Country: None (occurrence: None)
  Receive Date: 20110705
  Receipt Date: 20110608
  Transmission Date: 20111222
  Serious: Yes (Other)
  Sender: FDA-Public Use
  Company Number: US-BAYER-201021021NA

PATIENT
  Age: 33 Year
  Sex: Female
  Weight: 77.098 kg

DRUGS (8)
  1. VITAMIN B-12 [Concomitant]
     Dosage: 25 MG, UNK
     Route: 048
  2. YASMIN [Suspect]
     Indication: ACNE
  3. YASMIN [Suspect]
     Indication: PREMENSTRUAL SYNDROME
     Dosage: UNK
     Route: 048
     Dates: start: 20070209, end: 20090722
  4. FISH OIL [Concomitant]
     Dosage: 1200 MG, UNK
     Route: 048
  5. DROSPIRENONE AND ETHINYL ESTRADIOL [Suspect]
     Indication: PREMENSTRUAL SYNDROME
     Dosage: UNK
     Dates: start: 20080722, end: 20080818
  6. DROSPIRENONE AND ETHINYL ESTRADIOL [Suspect]
     Indication: ACNE
  7. BENEFIBER [Concomitant]
     Route: 048
  8. MULTI-VITAMIN [Concomitant]
     Indication: PREMENSTRUAL SYNDROME
     Route: 048

REACTIONS (3)
  - GALLBLADDER DISORDER [None]
  - CHOLECYSTITIS [None]
  - ABDOMINAL PAIN [None]
